FAERS Safety Report 8361974-X (Version None)
Quarter: 2012Q2

REPORT INFORMATION
  Report Type: 
  Country: None (occurrence: None)
  Receive Date: 20120515
  Receipt Date: 20120511
  Transmission Date: 20120825
  Serious: No
  Sender: FDA-Public Use
  Company Number: US-TEVA-337966USA

PATIENT
  Sex: Female
  Weight: 86.26 kg

DRUGS (2)
  1. DIET SUPPRESSANT [Concomitant]
     Indication: OBESITY
     Route: 048
     Dates: start: 20120401
  2. PLAN B ONE-STEP [Suspect]
     Indication: POST COITAL CONTRACEPTION
     Dosage: 1.5 MILLIGRAM;
     Route: 048
     Dates: start: 20120505, end: 20120505

REACTIONS (1)
  - MENSTRUATION IRREGULAR [None]
